FAERS Safety Report 23488849 (Version 1)
Quarter: 2024Q1

REPORT INFORMATION
  Report Type: Spontaneous
  Country: AR (occurrence: None)
  Receive Date: 20240206
  Receipt Date: 20240206
  Transmission Date: 20240410
  Serious: Yes (Life-Threatening, Hospitalization, Disabling, Other)
  Sender: FDA-Public Use
  Company Number: None

PATIENT
  Age: 43 Year
  Sex: Female
  Weight: 80 kg

DRUGS (9)
  1. CLOZAPINE [Suspect]
     Active Substance: CLOZAPINE
     Indication: Schizophrenia
     Dosage: 1 TABLET THREE TIMES A DAY BY MOUTH?
     Route: 048
     Dates: start: 20010801
  2. lorezepam [Concomitant]
  3. VALPROIC ACID [Concomitant]
     Active Substance: VALPROIC ACID
  4. LACTULOSE [Concomitant]
     Active Substance: LACTULOSE
  5. CALCIUM CITRATE [Concomitant]
     Active Substance: CALCIUM CITRATE
  6. VITAMIN D3 [Concomitant]
     Active Substance: CHOLECALCIFEROL
  7. LEVOTHYROXINE SODIUM [Concomitant]
     Active Substance: LEVOTHYROXINE SODIUM
  8. XARELTO [Concomitant]
     Active Substance: RIVAROXABAN
  9. PRUCALOPRIDE [Concomitant]
     Active Substance: PRUCALOPRIDE

REACTIONS (2)
  - Constipation [None]
  - Intestinal obstruction [None]

NARRATIVE: CASE EVENT DATE: 20230803
